FAERS Safety Report 5502486-8 (Version None)
Quarter: 2007Q4

REPORT INFORMATION
  Report Type: 
  Country: None (occurrence: None)
  Receive Date: 20071030
  Receipt Date: 20071018
  Transmission Date: 20080405
  Serious: Yes (Other)
  Sender: FDA-Public Use
  Company Number: JP-PFIZER INC-2007088623

PATIENT
  Age: 69 Year
  Sex: Male

DRUGS (1)
  1. METHYLPREDNISOLONE [Suspect]
     Indication: ACUTE RESPIRATORY DISTRESS SYNDROME
     Route: 042

REACTIONS (1)
  - PNEUMONIA CYTOMEGALOVIRAL [None]
